FAERS Safety Report 15460307 (Version 4)
Quarter: 2020Q3

REPORT INFORMATION
  Report Type: Report from Study
  Country: DE (occurrence: DE)
  Receive Date: 20181003
  Receipt Date: 20190205
  Transmission Date: 20201104
  Serious: Yes (Death, Hospitalization)
  Sender: FDA-Public Use
  Company Number: DE-JNJFOC-20181001729

PATIENT
  Age: 6 Decade
  Sex: Male
  Weight: 108 kg

DRUGS (3)
  1. TRABECTEDIN [Suspect]
     Active Substance: TRABECTEDIN
     Route: 042
  2. TRABECTEDIN [Suspect]
     Active Substance: TRABECTEDIN
     Indication: MYXOFIBROSARCOMA
     Dosage: CYCLE 1 TO 3
     Route: 042
     Dates: start: 20180807, end: 20180921
  3. TRABECTEDIN [Suspect]
     Active Substance: TRABECTEDIN
     Route: 042

REACTIONS (3)
  - Cerebrovascular accident [Fatal]
  - Acute kidney injury [Recovered/Resolved]
  - Pneumocystis jirovecii infection [Recovering/Resolving]

NARRATIVE: CASE EVENT DATE: 20180924
